FAERS Safety Report 7257306-0 (Version None)
Quarter: 2011Q1

REPORT INFORMATION
  Report Type: 
  Country: None (occurrence: None)
  Receive Date: 20110129
  Receipt Date: 20100628
  Transmission Date: 20110831
  Serious: No
  Sender: FDA-Public Use
  Company Number: US-ABBOTT-10P-163-0654183-00

PATIENT
  Age: 56 Year
  Sex: Female

DRUGS (16)
  1. EFFEXOR [Concomitant]
     Indication: DEPRESSION
  2. ASPIRIN [Concomitant]
     Indication: PRODUCT USED FOR UNKNOWN INDICATION
  3. LANTUS [Concomitant]
     Indication: DIABETES MELLITUS
     Dosage: AT BEDTIME
  4. NORVASC [Concomitant]
     Indication: HYPERTENSION
  5. LASIX [Concomitant]
     Indication: BREAST PAIN
  6. PERCOCET [Concomitant]
     Indication: PAIN
     Dosage: 5/325MG, 1-2 TABS EVERY 6 HRS AS NEEDED
  7. GLUCOVANCE [Concomitant]
     Indication: DIABETES MELLITUS
     Dosage: 1.5/250MG TWICE DAILY
  8. LOVASTATIN [Concomitant]
     Indication: HYPERLIPIDAEMIA
  9. LORAZEPAM [Concomitant]
     Indication: DEPRESSION
  10. LOVAZA [Concomitant]
     Indication: CARDIAC DISORDER
  11. NITROGLYCERIN [Concomitant]
     Indication: PRODUCT USED FOR UNKNOWN INDICATION
     Dosage: DAILY ON IN THE MORNING, OFF AT BEDTIME
  12. TOPROL-XL [Concomitant]
     Indication: HYPERTENSION
  13. DIOVAN HCT [Concomitant]
     Indication: HYPERTENSION
     Dosage: 166/12.5MG DAILY
  14. LASIX [Concomitant]
     Indication: FLUID RETENTION
  15. NITROGLYCERIN [Concomitant]
     Indication: PRODUCT USED FOR UNKNOWN INDICATION
  16. HUMIRA [Suspect]
     Indication: PSORIASIS
     Dates: start: 20100607

REACTIONS (2)
  - INJECTION SITE PAIN [None]
  - RHEUMATOID ARTHRITIS [None]
